FAERS Safety Report 14473044 (Version 4)
Quarter: 2018Q1

REPORT INFORMATION
  Report Type: Report from Study
  Country: None (occurrence: US)
  Receive Date: 20180201
  Receipt Date: 20180328
  Transmission Date: 20180509
  Serious: Yes (Hospitalization)
  Sender: FDA-Public Use
  Company Number: US-ABBVIE-17K-163-2060982-00

PATIENT
  Age: 48 Year
  Sex: Female
  Weight: 116.22 kg

DRUGS (6)
  1. HUMIRA [Suspect]
     Active Substance: ADALIMUMAB
     Route: 058
  2. LISINOPRIL. [Concomitant]
     Active Substance: LISINOPRIL
     Indication: HYPERTENSION
  3. HUMIRA [Suspect]
     Active Substance: ADALIMUMAB
     Route: 058
  4. OMEPRAZOLE. [Concomitant]
     Active Substance: OMEPRAZOLE
     Indication: GASTROOESOPHAGEAL REFLUX DISEASE
  5. HUMIRA [Suspect]
     Active Substance: ADALIMUMAB
     Indication: PSORIASIS
     Dosage: DAY 1
     Route: 058
     Dates: start: 20170803, end: 20170803
  6. HUMIRA [Suspect]
     Active Substance: ADALIMUMAB
     Dosage: FROM DAY 8
     Route: 058
     Dates: start: 201708, end: 20180111

REACTIONS (18)
  - Abdominal hernia obstructive [Recovered/Resolved]
  - Injection site pain [Recovered/Resolved]
  - Injection site haemorrhage [Recovering/Resolving]
  - Injection site pain [Recovering/Resolving]
  - Injection site bruising [Recovering/Resolving]
  - Skin discolouration [Recovering/Resolving]
  - Injection site haemorrhage [Recovering/Resolving]
  - Procedural pain [Recovering/Resolving]
  - Abdominal hernia [Recovering/Resolving]
  - Injection site haemorrhage [Recovered/Resolved]
  - Injection site bruising [Not Recovered/Not Resolved]
  - Dysgeusia [Not Recovered/Not Resolved]
  - Injection site pain [Recovered/Resolved]
  - Psoriasis [Recovering/Resolving]
  - Pain of skin [Recovering/Resolving]
  - Abdominal strangulated hernia [Recovered/Resolved]
  - Skin exfoliation [Recovering/Resolving]
  - Injection site pain [Recovering/Resolving]

NARRATIVE: CASE EVENT DATE: 2017
